FAERS Safety Report 7866603-7 (Version None)
Quarter: 2011Q4

REPORT INFORMATION
  Report Type: 
  Country: None (occurrence: None)
  Receive Date: 20111028
  Receipt Date: 20110713
  Transmission Date: 20120403
  Serious: No
  Sender: FDA-Public Use
  Company Number: US-GLAXOSMITHKLINE-A0936669A

PATIENT
  Age: 52 Year
  Sex: Male

DRUGS (13)
  1. TRAMADOL HCL [Concomitant]
  2. ADVAIR DISKUS 100/50 [Suspect]
     Indication: PRODUCT USED FOR UNKNOWN INDICATION
     Dosage: 1PUFF TWICE PER DAY
     Route: 055
     Dates: start: 20090101
  3. PRILOSEC [Concomitant]
  4. ATENOLOL [Concomitant]
  5. TYLENOL-500 [Concomitant]
  6. AMBIEN [Concomitant]
  7. VENTOLIN HFA [Concomitant]
  8. LISINOPRIL [Concomitant]
  9. OXYCODONE HCL AND ACETAMINOPHEN [Concomitant]
  10. LORTAB [Concomitant]
  11. FLEXERIL [Concomitant]
  12. ATIVAN [Concomitant]
  13. AVAPRO [Concomitant]

REACTIONS (2)
  - PRODUCT QUALITY ISSUE [None]
  - DYSPNOEA [None]
